FAERS Safety Report 15838526 (Version 1)
Quarter: 2019Q1

REPORT INFORMATION
  Report Type: Spontaneous
  Country: FR (occurrence: FR)
  Receive Date: 20190117
  Receipt Date: 20190117
  Transmission Date: 20190417
  Serious: Yes (Hospitalization, Disabling, Other)
  Sender: FDA-Public Use
  Company Number: FR-NOVOPROD-642249

PATIENT
  Sex: Female

DRUGS (7)
  1. CYPROTERONE ACETATE [Suspect]
     Active Substance: CYPROTERONE ACETATE
     Indication: PRODUCT USED FOR UNKNOWN INDICATION
     Dosage: 5 DF, QD
     Route: 048
     Dates: start: 2008
  2. CYPROTERONE ACETATE [Suspect]
     Active Substance: CYPROTERONE ACETATE
     Dosage: 5 DF, QD
     Route: 048
     Dates: start: 20161124
  3. ESTROFEM [ESTRADIOL] [Suspect]
     Active Substance: ESTRADIOL
     Indication: PRODUCT USED FOR UNKNOWN INDICATION
     Dosage: 1 DF, QD
     Route: 048
     Dates: start: 2008, end: 20170920
  4. CYPROTERONE ACETATE [Suspect]
     Active Substance: CYPROTERONE ACETATE
     Dosage: 5 DF, QD
     Route: 048
     Dates: start: 20130816
  5. CYPROTERONE ACETATE [Suspect]
     Active Substance: CYPROTERONE ACETATE
     Dosage: 5 DF, QD
     Route: 048
     Dates: start: 20140818
  6. CYPROTERONE ACETATE [Suspect]
     Active Substance: CYPROTERONE ACETATE
     Dosage: 5 DF, QD
     Dates: start: 20170920
  7. CYPROTERONE ACETATE [Suspect]
     Active Substance: CYPROTERONE ACETATE
     Dosage: 5 DF, QD
     Route: 048
     Dates: start: 20100820

REACTIONS (17)
  - Hemiplegia [Not Recovered/Not Resolved]
  - Eye haematoma [Unknown]
  - Balance disorder [Not Recovered/Not Resolved]
  - Diplopia [Not Recovered/Not Resolved]
  - Paraesthesia [Not Recovered/Not Resolved]
  - Cognitive disorder [Unknown]
  - Nervous system disorder [Unknown]
  - Coordination abnormal [Not Recovered/Not Resolved]
  - Dysarthria [Not Recovered/Not Resolved]
  - Hemiparaesthesia [Not Recovered/Not Resolved]
  - Meningioma [Not Recovered/Not Resolved]
  - Disorientation [Unknown]
  - Gait disturbance [Not Recovered/Not Resolved]
  - Hemiplegia [Unknown]
  - Fatigue [Not Recovered/Not Resolved]
  - Muscular weakness [Not Recovered/Not Resolved]
  - Language disorder [Unknown]

NARRATIVE: CASE EVENT DATE: 2017
